FAERS Safety Report 20822524 (Version 3)
Quarter: 2022Q2

REPORT INFORMATION
  Report Type: Spontaneous
  Country: US (occurrence: US)
  Receive Date: 20220512
  Receipt Date: 20220617
  Transmission Date: 20220721
  Serious: Yes (Other)
  Sender: FDA-Public Use
  Company Number: US-ORGANON-O2205USA000866

PATIENT
  Age: 17 Year
  Sex: Female
  Weight: 109.75 kg

DRUGS (3)
  1. NEXPLANON [Suspect]
     Active Substance: ETONOGESTREL
     Dosage: 1 IMPLANT
     Dates: start: 2019, end: 20220426
  2. NEXPLANON [Suspect]
     Active Substance: ETONOGESTREL
     Indication: Contraception
     Dosage: 1 IMPLANT OF 68 MG IN THE LEFT ARM
     Route: 059
     Dates: start: 20220426
  3. NEXPLANON [Suspect]
     Active Substance: ETONOGESTREL
     Indication: Menstrual cycle management

REACTIONS (7)
  - Device dislocation [Not Recovered/Not Resolved]
  - Device dislocation [Recovered/Resolved]
  - Device placement issue [Recovered/Resolved]
  - Limb discomfort [Unknown]
  - Pain in extremity [Recovering/Resolving]
  - Implant site haemorrhage [Unknown]
  - Product use in unapproved indication [Unknown]

NARRATIVE: CASE EVENT DATE: 20190101
